FAERS Safety Report 13210563 (Version 1)
Quarter: 2017Q1

REPORT INFORMATION
  Report Type: Spontaneous
  Country: US (occurrence: US)
  Receive Date: 20170210
  Receipt Date: 20170210
  Transmission Date: 20170428
  Serious: No
  Sender: FDA-Public Use
  Company Number: US-ELI_LILLY_AND_COMPANY-US201702002565

PATIENT
  Age: 19 Year
  Sex: Male

DRUGS (4)
  1. IGG [Suspect]
     Active Substance: HUMAN IMMUNOGLOBULIN G
     Indication: AUTOIMMUNE DISORDER
  2. IGG [Suspect]
     Active Substance: HUMAN IMMUNOGLOBULIN G
     Indication: PSORIASIS
     Dosage: UNK
     Route: 042
     Dates: start: 20161203
  3. TALTZ [Suspect]
     Active Substance: IXEKIZUMAB
     Indication: PSORIASIS
     Dosage: UNK
     Route: 065
     Dates: start: 20161203
  4. TALTZ [Suspect]
     Active Substance: IXEKIZUMAB
     Indication: AUTOIMMUNE DISORDER

REACTIONS (1)
  - Drug ineffective [Unknown]
